FAERS Safety Report 15009637 (Version 1)
Quarter: 2018Q2

REPORT INFORMATION
  Report Type: Spontaneous
  Country: US (occurrence: US)
  Receive Date: 20180614
  Receipt Date: 20180614
  Transmission Date: 20180711
  Serious: No
  Sender: FDA-Public Use
  Company Number: US-ASTRAZENECA-2018SE65236

PATIENT
  Age: 79 Year
  Sex: Male

DRUGS (3)
  1. BYDUREON [Suspect]
     Active Substance: EXENATIDE
     Indication: GLYCOSYLATED HAEMOGLOBIN
     Dosage: BYDUREON PEN, (2 MG, EVERY TWO WEEKS)
     Route: 058
     Dates: start: 2016
  2. BYDUREON BCISE [Concomitant]
     Active Substance: EXENATIDE
  3. BYDUREON [Suspect]
     Active Substance: EXENATIDE
     Indication: GLYCOSYLATED HAEMOGLOBIN
     Dosage: BYDUREON SINGLE DOSE TRAYS (2 MG, EVERY TWO WEEKS)
     Route: 058
     Dates: start: 2018

REACTIONS (5)
  - Drug dose omission [Unknown]
  - Product use issue [Unknown]
  - Off label use [Not Recovered/Not Resolved]
  - Glycosylated haemoglobin increased [Unknown]
  - Product quality issue [Unknown]

NARRATIVE: CASE EVENT DATE: 2016
